FAERS Safety Report 17522441 (Version 1)
Quarter: 2020Q1

REPORT INFORMATION
  Report Type: Spontaneous
  Country: CN (occurrence: CN)
  Receive Date: 20200310
  Receipt Date: 20200310
  Transmission Date: 20200409
  Serious: Yes (Death, Hospitalization, Other)
  Sender: FDA-Public Use
  Company Number: CN-009507513-2003CHN002254

PATIENT
  Age: 15 Year
  Sex: Female

DRUGS (1)
  1. ERTAPENEM SODIUM [Suspect]
     Active Substance: ERTAPENEM SODIUM
     Indication: ANTI-INFECTIVE THERAPY
     Dosage: UNK

REACTIONS (6)
  - Drug ineffective [Unknown]
  - Death [Fatal]
  - Hypovolaemic shock [Unknown]
  - Lymphoma [Unknown]
  - Still^s disease [Unknown]
  - Multiple organ dysfunction syndrome [Unknown]
